FAERS Safety Report 9713935 (Version 1)
Quarter: 2013Q4

REPORT INFORMATION
  Report Type: Spontaneous
  Country: US (occurrence: US)
  Receive Date: 20131126
  Receipt Date: 20131126
  Transmission Date: 20140711
  Serious: No
  Sender: FDA-Public Use
  Company Number: US-GILEAD-2008-0018216

PATIENT
  Sex: Female
  Weight: 72.12 kg

DRUGS (18)
  1. LETAIRIS [Suspect]
     Indication: PULMONARY ARTERIAL HYPERTENSION
     Route: 048
     Dates: start: 20080123
  2. BONIVA [Concomitant]
     Dosage: AS DIRECTED
     Route: 048
  3. LASIX [Concomitant]
     Dosage: AS DIRECTED
     Route: 048
  4. REVATIO [Concomitant]
     Dosage: AS DIRECTED
     Route: 048
  5. SYNTHROID [Concomitant]
     Dosage: AS DIRECTED
     Route: 048
  6. DIGOXIN [Concomitant]
     Dosage: AS DIRECTED
     Route: 048
  7. CALCIUM [Concomitant]
     Dosage: AS DIRECTED
     Route: 048
  8. POTASSIUM CHLORIDE [Concomitant]
     Dosage: AS DIRECTED
     Route: 048
  9. CYCLOPHOSPHAMIDE [Concomitant]
     Dosage: AS DIRECTED
     Route: 048
  10. LIPITOR [Concomitant]
     Dosage: AS DIRECTED
     Route: 048
  11. PREDNISONE [Concomitant]
     Dosage: AS DIRECTED
     Route: 048
  12. PREDNISONE [Concomitant]
     Dosage: AS DIRECTED
     Route: 048
  13. MULTIVITAMINS [Concomitant]
     Dosage: AS DIRECTED
  14. METOCLOPRAMIDE [Concomitant]
     Dosage: AS DIRECTED
     Route: 048
  15. PREVACID [Concomitant]
     Dosage: AS DIRECTED
     Route: 048
  16. WARFARIN [Concomitant]
     Dosage: AS DIRECTED
     Route: 048
  17. OXYGEN [Concomitant]
     Dosage: AS DIRECTED
  18. ASPIRIN [Concomitant]
     Dosage: AS DIRECTED
     Route: 048

REACTIONS (2)
  - Local swelling [None]
  - Constipation [None]
